FAERS Safety Report 14683105 (Version 3)
Quarter: 2018Q3

REPORT INFORMATION
  Report Type: Spontaneous
  Country: JP (occurrence: JP)
  Receive Date: 20180327
  Receipt Date: 20180903
  Transmission Date: 20181010
  Serious: Yes (Other)
  Sender: FDA-Public Use
  Company Number: JP-SUN PHARMACEUTICAL INDUSTRIES LTD-2017R1-165942

PATIENT
  Age: 65 Year
  Sex: Male

DRUGS (1)
  1. LITHIUM. [Suspect]
     Active Substance: LITHIUM
     Indication: PRODUCT USED FOR UNKNOWN INDICATION
     Route: 065

REACTIONS (5)
  - Gait disturbance [Recovering/Resolving]
  - Dysarthria [Recovering/Resolving]
  - Blood creatinine increased [Unknown]
  - Toxicity to various agents [Unknown]
  - Tremor [Recovering/Resolving]
